FAERS Safety Report 8511664-5 (Version None)
Quarter: 2012Q3

REPORT INFORMATION
  Report Type: 
  Country: None (occurrence: None)
  Receive Date: 20120716
  Receipt Date: 20120702
  Transmission Date: 20120928
  Serious: No
  Sender: FDA-Public Use
  Company Number: JP-ELI_LILLY_AND_COMPANY-JP201206007966

PATIENT
  Age: 48 Year
  Sex: Male
  Weight: 78 kg

DRUGS (8)
  1. LOSARTAN POTASSIUM [Concomitant]
     Dosage: 50 MG, QD
     Route: 048
     Dates: start: 20110607
  2. CYMBALTA [Suspect]
     Dosage: 20 MG, BID
     Route: 048
     Dates: start: 20110608, end: 20110705
  3. ZOLPIDEM [Concomitant]
     Dosage: 10 MG, QD
     Route: 048
     Dates: start: 20110414
  4. FLUVOXAMINE MALEATE [Concomitant]
     Dosage: UNK
     Route: 048
  5. CYMBALTA [Suspect]
     Indication: DEPRESSION
     Dosage: 20 MG, QD
     Route: 048
     Dates: start: 20110524, end: 20110607
  6. AMLODIPINE [Concomitant]
     Dosage: 2.5 MG, BID
     Route: 048
     Dates: start: 20110510
  7. RAMELTEON [Concomitant]
     Dosage: 8 MG, QD
     Route: 048
     Dates: start: 20110510
  8. CYMBALTA [Suspect]
     Dosage: 20 MG, TID
     Route: 048
     Dates: start: 20110706, end: 20120327

REACTIONS (4)
  - BLOOD TRIGLYCERIDES INCREASED [None]
  - ALANINE AMINOTRANSFERASE INCREASED [None]
  - MANIA [None]
  - BLOOD URIC ACID INCREASED [None]
